FAERS Safety Report 10403516 (Version 1)
Quarter: 2014Q3

REPORT INFORMATION
  Report Type: Spontaneous
  Country: US (occurrence: None)
  Receive Date: 20140821
  Receipt Date: 20140821
  Transmission Date: 20150326
  Serious: No
  Sender: FDA-Public Use
  Company Number: None

PATIENT
  Age: 75 Year
  Sex: Female
  Weight: 79.38 kg

DRUGS (7)
  1. METFORMIN [Concomitant]
     Active Substance: METFORMIN HYDROCHLORIDE
  2. BYSTOLIC [Suspect]
     Active Substance: NEBIVOLOL HYDROCHLORIDE
     Indication: BLOOD PRESSURE
     Dosage: 1 PILL A DAY
     Route: 048
     Dates: start: 2011, end: 20111218
  3. MULTIVITAMIN UD [Concomitant]
  4. SYNTHROID [Concomitant]
     Active Substance: LEVOTHYROXINE SODIUM
  5. CHOLEST OFF [Concomitant]
  6. VITAMIN B [Concomitant]
     Active Substance: VITAMIN B
  7. CPAP INHALER [Concomitant]

REACTIONS (3)
  - Fatigue [None]
  - Road traffic accident [None]
  - Somnolence [None]

NARRATIVE: CASE EVENT DATE: 2011
